FAERS Safety Report 17441836 (Version 1)
Quarter: 2020Q1

REPORT INFORMATION
  Report Type: Spontaneous
  Country: US (occurrence: US)
  Receive Date: 20200220
  Receipt Date: 20200220
  Transmission Date: 20200409
  Serious: Yes (Other)
  Sender: FDA-Public Use
  Company Number: US-AMERICAN REGENT INC-2020000391

PATIENT
  Age: 21 Year
  Sex: Female

DRUGS (2)
  1. VENOFER [Suspect]
     Active Substance: IRON SUCROSE
     Indication: IRON DEFICIENCY ANAEMIA
  2. VENOFER [Suspect]
     Active Substance: IRON SUCROSE
     Indication: MALABSORPTION
     Dosage: UNK (3 DOSES TOTAL)
     Route: 042
     Dates: start: 20180420, end: 201904

REACTIONS (3)
  - Serum ferritin decreased [Unknown]
  - Blood iron decreased [Unknown]
  - Angioedema [Recovered/Resolved]

NARRATIVE: CASE EVENT DATE: 2019
